FAERS Safety Report 9084703 (Version 1)
Quarter: 2013Q1

REPORT INFORMATION
  Report Type: Spontaneous
  Country: US (occurrence: US)
  Receive Date: 20130130
  Receipt Date: 20130130
  Transmission Date: 20140127
  Serious: No
  Sender: FDA-Public Use
  Company Number: US-009507513-1301USA011720

PATIENT
  Sex: Male

DRUGS (11)
  1. VICTRELIS [Suspect]
     Dosage: 200 MG
     Route: 048
  2. REBETOL [Suspect]
     Route: 048
  3. PEGINTERFERON ALFA-2B [Suspect]
  4. HUMULIN [Concomitant]
  5. LISINOPRIL [Concomitant]
  6. CITALOPRAM [Concomitant]
  7. METFORMIN [Concomitant]
  8. VALTREX [Concomitant]
  9. ATRIPLA [Concomitant]
  10. VITAMINS (UNSPECIFIED) [Concomitant]
  11. EPOGEN [Concomitant]

REACTIONS (1)
  - Anaemia [Unknown]
